FAERS Safety Report 5808172-9 (Version None)
Quarter: 2008Q3

REPORT INFORMATION
  Report Type: 
  Country: None (occurrence: None)
  Receive Date: 20080709
  Receipt Date: 20080625
  Transmission Date: 20090109
  Serious: Yes (Other)
  Sender: FDA-Public Use
  Company Number: 2008016884

PATIENT
  Age: 48 Year
  Sex: Male
  Weight: 81.6475 kg

DRUGS (1)
  1. ROGAINE 5 [Suspect]
     Indication: ALOPECIA
     Dosage: 1 ML 2X PER DAY (2 IN 1 D), TOPICAL
     Route: 061
     Dates: start: 20080607, end: 20080613

REACTIONS (2)
  - CONVULSION [None]
  - RASH [None]
